FAERS Safety Report 25435097 (Version 1)
Quarter: 2025Q2

REPORT INFORMATION
  Report Type: Spontaneous
  Country: RO (occurrence: RO)
  Receive Date: 20250613
  Receipt Date: 20250613
  Transmission Date: 20250716
  Serious: Yes (Other)
  Sender: ELI LILLY AND COMPANY
  Company Number: RO-Merck Healthcare KGaA-2025029714

PATIENT
  Age: 49 Year
  Sex: Male

DRUGS (3)
  1. ERBITUX [Suspect]
     Active Substance: CETUXIMAB
     Indication: Laryngeal squamous cell carcinoma
     Dosage: UNK UNK, WEEKLY (1/W)
     Route: 065
     Dates: start: 202003, end: 202401
  2. CARBOPLATIN [Concomitant]
     Active Substance: CARBOPLATIN
     Indication: Laryngeal squamous cell carcinoma
     Dates: start: 202003, end: 202401
  3. FLUOROURACIL [Concomitant]
     Active Substance: FLUOROURACIL
     Indication: Laryngeal squamous cell carcinoma
     Dates: start: 202003, end: 202401

REACTIONS (1)
  - Hepatotoxicity [Unknown]
